FAERS Safety Report 5171490-4 (Version None)
Quarter: 2006Q4

REPORT INFORMATION
  Report Type: 
  Country: None (occurrence: None)
  Receive Date: 20061213
  Receipt Date: 20040806
  Transmission Date: 20070319
  Serious: Yes (Other)
  Sender: FDA-Public Use
  Company Number: US-AMGEN-US086728

PATIENT
  Sex: Female

DRUGS (10)
  1. ENBREL [Suspect]
     Indication: PSORIASIS
     Route: 058
     Dates: start: 20031002
  2. ENBREL [Suspect]
     Indication: RHEUMATOID ARTHRITIS
  3. NEURONTIN [Concomitant]
  4. FIORICET [Concomitant]
  5. CLONIDINE [Concomitant]
  6. VIOXX [Concomitant]
  7. PROTONIX [Concomitant]
  8. ESTRACE [Concomitant]
  9. ZOCOR [Concomitant]
  10. PLAVIX [Concomitant]

REACTIONS (2)
  - BLADDER TRANSITIONAL CELL CARCINOMA [None]
  - OESOPHAGEAL CARCINOMA [None]
